FAERS Safety Report 19051123 (Version 2)
Quarter: 2021Q2

REPORT INFORMATION
  Report Type: Report from Study
  Country: None (occurrence: US)
  Receive Date: 20210323
  Receipt Date: 20210628
  Transmission Date: 20210717
  Serious: Yes (Hospitalization)
  Sender: FDA-Public Use
  Company Number: US-ABBVIE-21K-163-3824778-00

PATIENT
  Sex: Female

DRUGS (2)
  1. DUOPA [Suspect]
     Active Substance: CARBIDOPA\LEVODOPA
     Route: 050
  2. DUOPA [Suspect]
     Active Substance: CARBIDOPA\LEVODOPA
     Indication: PARKINSON^S DISEASE
     Route: 050
     Dates: start: 20171017

REACTIONS (6)
  - Device occlusion [Unknown]
  - Device kink [Recovered/Resolved]
  - Wrong technique in product usage process [Unknown]
  - Balance disorder [Recovered/Resolved]
  - Fall [Recovered/Resolved with Sequelae]
  - Femur fracture [Recovering/Resolving]

NARRATIVE: CASE EVENT DATE: 2020
